FAERS Safety Report 6356701-1 (Version None)
Quarter: 2009Q3

REPORT INFORMATION
  Report Type: 
  Country: None (occurrence: None)
  Receive Date: 20090914
  Receipt Date: 20090914
  Transmission Date: 20100115
  Serious: Yes (Death)
  Sender: FDA-Public Use
  Company Number: None

PATIENT
  Sex: Female
  Weight: 48.0813 kg

DRUGS (1)
  1. ACETAMINOPHEN AND CODEINE PHOSPHATE [Suspect]
     Indication: BACK PAIN
     Dosage: 2 TABLETS EVERY 4 HRS

REACTIONS (4)
  - POLYDIPSIA [None]
  - SKIN DISCOLOURATION [None]
  - SWELLING FACE [None]
  - VOMITING [None]
